FAERS Safety Report 22018163 (Version 1)
Quarter: 2023Q1

REPORT INFORMATION
  Report Type: Spontaneous
  Country: JP (occurrence: BR)
  Receive Date: 20230221
  Receipt Date: 20230221
  Transmission Date: 20230417
  Serious: Yes (Other)
  Sender: FDA-Public Use
  Company Number: JP-DSPHARMA-2023SUN000303

PATIENT
  Age: 45 Year
  Sex: Female
  Weight: 68 kg

DRUGS (6)
  1. LATUDA [Suspect]
     Active Substance: LURASIDONE HYDROCHLORIDE
     Indication: Product used for unknown indication
     Dosage: 20 MG, HS
     Route: 048
     Dates: start: 202208
  2. CLONAZEPAM [Concomitant]
     Active Substance: CLONAZEPAM
     Dosage: 2 MG
     Route: 065
  3. LAMOTRIGINE [Concomitant]
     Active Substance: LAMOTRIGINE
     Dosage: 100 MG
     Route: 065
  4. LITHIUM [Concomitant]
     Active Substance: LITHIUM
     Dosage: 300 MG
     Route: 065
  5. PURAN [Concomitant]
     Active Substance: LEVOTHYROXINE SODIUM
     Dosage: UNK
     Route: 065
  6. LOSARTAN [Concomitant]
     Active Substance: LOSARTAN
     Dosage: 50 MG
     Route: 065

REACTIONS (3)
  - Near death experience [Unknown]
  - Syncope [Unknown]
  - Blood pressure increased [Unknown]
